FAERS Safety Report 23621933 (Version 3)
Quarter: 2024Q2

REPORT INFORMATION
  Report Type: Report from Study
  Country: CL (occurrence: CL)
  Receive Date: 20240312
  Receipt Date: 20240502
  Transmission Date: 20240716
  Serious: No
  Sender: FDA-Public Use
  Company Number: CL-JNJFOC-20240268759

PATIENT
  Age: 56 Year
  Sex: Female

DRUGS (4)
  1. SIMPONI [Suspect]
     Active Substance: GOLIMUMAB
     Indication: Psoriatic arthropathy
     Dosage: STRENGTH: 50.00 MG / 0.50 ML
     Route: 058
     Dates: start: 20221220
  2. SIMPONI [Suspect]
     Active Substance: GOLIMUMAB
  3. SIMPONI [Suspect]
     Active Substance: GOLIMUMAB
     Indication: Psoriatic arthropathy
     Dosage: STRENGTH: 50.00 MG / 0.50 ML
     Route: 058
     Dates: start: 20221220
  4. SIMPONI [Suspect]
     Active Substance: GOLIMUMAB

REACTIONS (3)
  - Device leakage [Unknown]
  - Accidental exposure to product [Unknown]
  - Product dose omission issue [Unknown]
